FAERS Safety Report 14348059 (Version 1)
Quarter: 2018Q1

REPORT INFORMATION
  Report Type: Spontaneous
  Country: US (occurrence: US)
  Receive Date: 20180103
  Receipt Date: 20180103
  Transmission Date: 20180509
  Serious: No
  Sender: FDA-Public Use
  Company Number: US-ABBVIE-17P-163-1877938-00

PATIENT
  Age: 33 Year
  Sex: Female
  Weight: 75.36 kg

DRUGS (2)
  1. LUPRON DEPOT [Suspect]
     Active Substance: LEUPROLIDE ACETATE
     Indication: PRODUCT USED FOR UNKNOWN INDICATION
     Route: 050
     Dates: start: 20170214, end: 20170214
  2. PRENATAL VITAMINS [Concomitant]
     Active Substance: VITAMINS
     Indication: PRODUCT USED FOR UNKNOWN INDICATION
     Route: 065

REACTIONS (4)
  - Injection site haemorrhage [Recovered/Resolved]
  - Injury associated with device [Recovering/Resolving]
  - Exposure during pregnancy [Recovered/Resolved]
  - Normal newborn [Not Recovered/Not Resolved]

NARRATIVE: CASE EVENT DATE: 20170214
